FAERS Safety Report 5086455-0 (Version None)
Quarter: 2006Q3

REPORT INFORMATION
  Report Type: 
  Country: None (occurrence: None)
  Receive Date: 20060703
  Receipt Date: 20050916
  Transmission Date: 20061208
  Serious: No
  Sender: FDA-Public Use
  Company Number: 2005S1009124

PATIENT
  Age: 50 Year
  Sex: Male

DRUGS (5)
  1. CLOZAPINE [Suspect]
     Indication: SCHIZOPHRENIA
     Dosage: SEE IMAGE
     Route: 048
     Dates: start: 20050301, end: 20050912
  2. CLOZAPINE [Suspect]
     Indication: SCHIZOPHRENIA
     Dosage: SEE IMAGE
     Route: 048
     Dates: start: 20050301, end: 20050912
  3. OLANZAPINE [Concomitant]
  4. TOPIRAMATE [Concomitant]
  5. VITAMINS NOS [Concomitant]

REACTIONS (2)
  - GRANULOCYTOPENIA [None]
  - LEUKOPENIA [None]
